FAERS Safety Report 10935568 (Version 4)
Quarter: 2015Q2

REPORT INFORMATION
  Report Type: Spontaneous
  Country: BR (occurrence: BR)
  Receive Date: 20150320
  Receipt Date: 20150610
  Transmission Date: 20150821
  Serious: Yes (Other)
  Sender: FDA-Public Use
  Company Number: BR-ASTRAZENECA-2015SE24416

PATIENT
  Age: 40 Year
  Sex: Female
  Weight: 75 kg

DRUGS (4)
  1. SYMBICORT [Suspect]
     Active Substance: BUDESONIDE\FORMOTEROL FUMARATE DIHYDRATE
     Dosage: 12/400 MCG, BID, ALENIA
     Route: 055
     Dates: start: 2012, end: 201412
  2. SYMBICORT [Suspect]
     Active Substance: BUDESONIDE\FORMOTEROL FUMARATE DIHYDRATE
     Dosage: 320/9 MCG, BID
     Route: 055
     Dates: start: 201412
  3. OMEPRAZOLE. [Suspect]
     Active Substance: OMEPRAZOLE
     Indication: GASTRITIS
     Dosage: EVERY DAY
     Route: 048
     Dates: start: 2014
  4. BENICAR [Concomitant]
     Active Substance: OLMESARTAN MEDOXOMIL
     Indication: HYPERTENSION
     Dosage: EVERY OTHER DAY

REACTIONS (9)
  - Gastritis [Recovered/Resolved]
  - Catarrh [Recovered/Resolved]
  - Pain [Recovered/Resolved]
  - Helicobacter infection [Unknown]
  - Swelling [Unknown]
  - Weight increased [Recovering/Resolving]
  - Bone density decreased [Not Recovered/Not Resolved]
  - White blood cell count increased [Recovered/Resolved]
  - Dyspnoea [Recovered/Resolved]

NARRATIVE: CASE EVENT DATE: 2012
